FAERS Safety Report 16063620 (Version 1)
Quarter: 2019Q1

REPORT INFORMATION
  Report Type: Spontaneous
  Country: US (occurrence: US)
  Receive Date: 20190312
  Receipt Date: 20190312
  Transmission Date: 20190418
  Serious: Yes (Hospitalization, Other)
  Sender: FDA-Public Use
  Company Number: US-ELI_LILLY_AND_COMPANY-US201903000066

PATIENT
  Sex: Female

DRUGS (3)
  1. HUMALOG [Suspect]
     Active Substance: INSULIN LISPRO
     Indication: TYPE 2 DIABETES MELLITUS
     Dosage: UNK, UNKNOWN
     Route: 065
     Dates: end: 20190228
  2. BRILINTA [Concomitant]
     Active Substance: TICAGRELOR
  3. VELTASSA [Concomitant]
     Active Substance: PATIROMER

REACTIONS (3)
  - Diabetic ketoacidosis [Recovering/Resolving]
  - Macular degeneration [Not Recovered/Not Resolved]
  - Diabetic retinopathy [Not Recovered/Not Resolved]
